FAERS Safety Report 9060327 (Version 1)
Quarter: 2013Q1

REPORT INFORMATION
  Report Type: Report from Study
  Country: NL (occurrence: NL)
  Receive Date: 20130212
  Receipt Date: 20130212
  Transmission Date: 20140127
  Serious: Yes (Hospitalization)
  Sender: FDA-Public Use
  Company Number: NL-ROCHE-1187365

PATIENT
  Age: 62 None
  Sex: Male
  Weight: 88.5 kg

DRUGS (12)
  1. CELLCEPT [Concomitant]
     Route: 065
     Dates: start: 20120918
  2. EZETIMIB [Concomitant]
     Route: 065
     Dates: start: 20111025
  3. PREDNISONE [Concomitant]
     Route: 065
     Dates: start: 20110405
  4. SILDENAFIL [Concomitant]
     Route: 065
     Dates: start: 20121113
  5. CALCIUM CARBONATE [Concomitant]
     Route: 065
     Dates: start: 20110411
  6. CHOLECALCIFEROL [Concomitant]
     Dosage: 50000 IE
     Route: 065
     Dates: start: 20110411
  7. GLICLAZIDE [Concomitant]
     Route: 065
     Dates: start: 20110429
  8. ATORVASTATIN [Concomitant]
     Route: 065
     Dates: start: 20121113
  9. OMEPRAZOLE [Concomitant]
     Route: 065
     Dates: start: 20110405
  10. TAMSULOSIN [Concomitant]
     Route: 065
     Dates: start: 20110405
  11. CARBASALATE CALCIUM [Concomitant]
     Route: 065
     Dates: start: 20110607
  12. RITUXIMAB [Suspect]
     Indication: RENAL TRANSPLANT
     Dosage: DATE OF LAST DOSE : 5/APR/2011
     Route: 042
     Dates: start: 20110405

REACTIONS (1)
  - Dental caries [Recovered/Resolved]
